FAERS Safety Report 13794355 (Version 5)
Quarter: 2017Q3

REPORT INFORMATION
  Report Type: Report from Study
  Country: US (occurrence: US)
  Receive Date: 20170726
  Receipt Date: 20170927
  Transmission Date: 20171127
  Serious: Yes (Hospitalization)
  Sender: FDA-Public Use
  Company Number: US-PFIZER INC-2017322939

PATIENT
  Age: 65 Year
  Sex: Female
  Weight: 40.18 kg

DRUGS (7)
  1. ADRIAMYCIN [Suspect]
     Active Substance: DOXORUBICIN HYDROCHLORIDE
     Indication: BREAST CANCER
     Dosage: 83.4 MG, EVERY 2 WEEKS
     Route: 042
     Dates: start: 20170504, end: 20170615
  2. IRINOTECAN HCL [Suspect]
     Active Substance: IRINOTECAN HYDROCHLORIDE
     Indication: BREAST CANCER
     Dosage: 34.8 MG, Q2W
     Route: 042
     Dates: start: 20170202, end: 20170413
  3. BRIMONIDINE/TIMOLOL [Concomitant]
     Dosage: BRIMONIDINE  TIMOLOL, 0.2-0.5%, 1 DROP Q12H, OCULAR
     Route: 047
     Dates: start: 20140516
  4. DENOSUMAB [Concomitant]
     Active Substance: DENOSUMAB
     Dosage: INJECTION, 60 MG, TWICE ANNUALLY
     Dates: start: 20151119
  5. TALAZOPARIB [Suspect]
     Active Substance: TALAZOPARIB
     Indication: BREAST CANCER
     Dosage: 1 MG, 1X/DAY
     Route: 048
     Dates: start: 20170202, end: 20170426
  6. CYTOXAN [Suspect]
     Active Substance: CYCLOPHOSPHAMIDE
     Indication: BREAST CANCER
     Dosage: 834 MG, EVERY 2 WEEKS
     Route: 042
     Dates: start: 20170504, end: 20170615
  7. BIMATOPROST. [Concomitant]
     Active Substance: BIMATOPROST
     Dosage: 1 DROP, HS, OCULAR
     Route: 047
     Dates: start: 20140516

REACTIONS (1)
  - Pneumonitis [Not Recovered/Not Resolved]

NARRATIVE: CASE EVENT DATE: 20170707
